FAERS Safety Report 9972952 (Version 1)
Quarter: 2014Q1

REPORT INFORMATION
  Report Type: Spontaneous
  Country: US (occurrence: US)
  Receive Date: 20140306
  Receipt Date: 20140306
  Transmission Date: 20141002
  Serious: Yes (Other)
  Sender: FDA-Public Use
  Company Number: US-PFIZER INC-2014060829

PATIENT
  Age: 55 Year
  Sex: Male
  Weight: 99.77 kg

DRUGS (9)
  1. VENLAFAXINE HCL [Suspect]
     Indication: DEPRESSION
     Dosage: 150 MG, 1X/DAY
     Dates: start: 2010
  2. VENLAFAXINE HCL [Suspect]
     Indication: ANXIETY
     Dosage: 300 MG, 1X/DAY
  3. PRILOSEC [Concomitant]
     Indication: GASTROOESOPHAGEAL REFLUX DISEASE
     Dosage: 20 MG, UNK
  4. DIOVAN (VALSARTAN) [Concomitant]
     Indication: BLOOD PRESSURE ABNORMAL
     Dosage: 80 MG, UNK
  5. REMERON [Concomitant]
     Indication: DEPRESSION
     Dosage: HALF TABLET OF 15 MG DAILY
  6. BUSPAR [Concomitant]
     Indication: ANXIETY
     Dosage: 5 MG, 3X/DAY
     Dates: start: 2011
  7. TEMAZEPAM [Concomitant]
     Indication: SLEEP DISORDER
     Dosage: 60 MG, 1X/DAY
  8. MELATONIN [Concomitant]
     Indication: SLEEP DISORDER
     Dosage: 10 MG, 1X/DAY
  9. LAMICTAL [Concomitant]
     Indication: AFFECTIVE DISORDER
     Dosage: 50 MG, 1X/DAY

REACTIONS (1)
  - Lung disorder [Unknown]
